FAERS Safety Report 6769006-1 (Version None)
Quarter: 2010Q2

REPORT INFORMATION
  Report Type: 
  Country: None (occurrence: None)
  Receive Date: 20100615
  Receipt Date: 20100607
  Transmission Date: 20101027
  Serious: No
  Sender: FDA-Public Use
  Company Number: US-BIOGENIDEC-2010BI019229

PATIENT
  Age: 40 Year
  Sex: Male

DRUGS (3)
  1. TYSABRI [Suspect]
     Indication: MULTIPLE SCLEROSIS
     Route: 042
     Dates: start: 20070406, end: 20070907
  2. TYSABRI [Suspect]
     Route: 042
     Dates: start: 20080811, end: 20090604
  3. TYSABRI [Suspect]
     Route: 042
     Dates: start: 20100211

REACTIONS (1)
  - ABDOMINAL DISCOMFORT [None]
